FAERS Safety Report 7397991-6 (Version None)
Quarter: 2011Q2

REPORT INFORMATION
  Report Type: 
  Country: None (occurrence: None)
  Receive Date: 20110406
  Receipt Date: 20081201
  Transmission Date: 20111010
  Serious: Yes (Other)
  Sender: FDA-Public Use
  Company Number: US-AMGEN-QUU321901

PATIENT
  Age: 37 Year
  Sex: Female

DRUGS (4)
  1. ENBREL [Suspect]
     Indication: RHEUMATOID ARTHRITIS
     Dosage: 25 MG, 2 TIMES/WK
     Route: 058
  2. IBUPROFEN [Concomitant]
     Dosage: UNK UNK, PRN
  3. PREDNISONE [Concomitant]
     Dosage: 10 MG, QD
     Route: 048
  4. PRENATAL VITAMINS [Concomitant]
     Dosage: UNK UNK, QD
     Route: 048

REACTIONS (1)
  - PREMATURE LABOUR [None]
